FAERS Safety Report 9356809 (Version 1)
Quarter: 2013Q2

REPORT INFORMATION
  Report Type: Spontaneous
  Country: US (occurrence: US)
  Receive Date: 20130619
  Receipt Date: 20130619
  Transmission Date: 20140414
  Serious: Yes (Other)
  Sender: FDA-Public Use
  Company Number: US-AMGEN-USASP2013042144

PATIENT
  Age: 71 Year
  Sex: Female

DRUGS (2)
  1. ARANESP [Suspect]
     Indication: PRODUCT USED FOR UNKNOWN INDICATION
     Dosage: UNK
     Dates: start: 200811
  2. PREDNISONE [Concomitant]
     Dosage: UNK, QWK

REACTIONS (4)
  - Renal transplant [Unknown]
  - Malaise [Unknown]
  - Blood iron decreased [Unknown]
  - Haemoglobin decreased [Unknown]
